FAERS Safety Report 9287048 (Version 2)
Quarter: 2013Q4

REPORT INFORMATION
  Report Type: Spontaneous
  Country: US (occurrence: US)
  Receive Date: 20130513
  Receipt Date: 20131017
  Transmission Date: 20140711
  Serious: Yes (Hospitalization)
  Sender: FDA-Public Use
  Company Number: US-B.I. PHARMACEUTICALS,INC./RIDGEFIELD-2013-BI-13177BP

PATIENT
  Age: 75 Year
  Sex: Female
  Weight: 102.51 kg

DRUGS (9)
  1. PRADAXA [Suspect]
     Indication: ANTICOAGULANT THERAPY
     Dosage: 300 MG
     Route: 048
     Dates: start: 20110727, end: 20120120
  2. PRADAXA [Suspect]
     Indication: ATRIAL FIBRILLATION
  3. FENOFIBRATE [Concomitant]
     Dates: start: 2008
  4. SIMVASTATIN [Concomitant]
     Dates: start: 2008
  5. LATANOPROST [Concomitant]
     Dates: start: 2011
  6. LASIX [Concomitant]
     Dates: start: 2011
  7. VITAMIN D [Concomitant]
  8. FERROUS SULFATE [Concomitant]
  9. OMEGA 3 FISH OIL [Concomitant]

REACTIONS (2)
  - Gastrointestinal haemorrhage [Recovered/Resolved]
  - Haemorrhagic anaemia [Unknown]
